FAERS Safety Report 7832371-8 (Version None)
Quarter: 2011Q4

REPORT INFORMATION
  Report Type: 
  Country: None (occurrence: None)
  Receive Date: 20111022
  Receipt Date: 20111005
  Transmission Date: 20120403
  Serious: Yes (Hospitalization)
  Sender: FDA-Public Use
  Company Number: US-BAYER-2011-052678

PATIENT
  Age: 23 Year
  Sex: Female
  Weight: 172 kg

DRUGS (8)
  1. HYDROCODONE BITARTRATE AND ACETAMINOPHEN [Concomitant]
     Dosage: 500 MG, UNK
     Route: 048
  2. TORADOL [Concomitant]
     Dosage: 30 MG, UNK
     Route: 042
  3. JANUMET [Concomitant]
     Route: 048
  4. PERCOCET [Concomitant]
     Dosage: UNK
     Route: 048
  5. SYMLIN [Concomitant]
     Dosage: 120 UNK, UNK
  6. LANTUS [Concomitant]
  7. DROSPIRENONE AND ETHINYL ESTRADIOL [Suspect]
     Indication: CONTRACEPTION
     Dosage: UNK
     Dates: start: 20080101, end: 20090101
  8. NUBAIN [Concomitant]
     Dosage: 10 MG, UNK
     Route: 030

REACTIONS (3)
  - PAIN [None]
  - INJURY [None]
  - DEEP VEIN THROMBOSIS [None]
